FAERS Safety Report 6457550-6 (Version None)
Quarter: 2009Q4

REPORT INFORMATION
  Report Type: 
  Country: None (occurrence: None)
  Receive Date: 20091125
  Receipt Date: 20091116
  Transmission Date: 20100525
  Serious: Yes (Other)
  Sender: FDA-Public Use
  Company Number: PHHY2009DE43226

PATIENT
  Sex: Male

DRUGS (4)
  1. DIOVAN [Suspect]
     Indication: HYPERTENSION
     Dosage: 80 MG
  2. DIOVAN [Suspect]
     Dosage: 120 MG
  3. DICLOFENAC [Suspect]
     Indication: ARTHROPATHY
  4. MARCUMAR [Concomitant]
     Dosage: UNK

REACTIONS (3)
  - BLOOD PRESSURE FLUCTUATION [None]
  - EPISTAXIS [None]
  - HYPERTENSIVE CRISIS [None]
